FAERS Safety Report 20461429 (Version 1)
Quarter: 2022Q1

REPORT INFORMATION
  Report Type: Spontaneous
  Country: US (occurrence: None)
  Receive Date: 20220211
  Receipt Date: 20220211
  Transmission Date: 20220423
  Serious: Yes (Hospitalization)
  Sender: FDA-Public Use
  Company Number: None

PATIENT
  Sex: Male
  Weight: 57 kg

DRUGS (6)
  1. ONCASPAR [Suspect]
     Active Substance: PEGASPARGASE
  2. PREDNISOLONE [Concomitant]
  3. DAUNORUBICIN [Concomitant]
  4. VINCRISTINE SULFATE [Concomitant]
     Active Substance: VINCRISTINE SULFATE
  5. CYTARABINE [Concomitant]
  6. METHOTREXATE [Concomitant]
     Active Substance: METHOTREXATE

REACTIONS (7)
  - Hypotension [None]
  - Tachycardia [None]
  - Lactic acidosis [None]
  - Dizziness [None]
  - Lethargy [None]
  - Contusion [None]
  - Pancreatitis [None]

NARRATIVE: CASE EVENT DATE: 20220202
